FAERS Safety Report 4941698-9 (Version None)
Quarter: 2006Q1

REPORT INFORMATION
  Report Type: 
  Country: None (occurrence: None)
  Receive Date: 20060313
  Receipt Date: 20051004
  Transmission Date: 20060701
  Serious: Yes (Hospitalization)
  Sender: FDA-Public Use
  Company Number: US-ROCHE-420199

PATIENT
  Age: 56 Year
  Sex: Female

DRUGS (4)
  1. PEGASYS [Suspect]
     Route: 065
     Dates: start: 20050725, end: 20050919
  2. PEGASYS [Suspect]
     Dosage: INJECTIONS AT 0.4 ML DOSE (135MCG)
     Route: 065
     Dates: start: 20051103, end: 20060122
  3. COPEGUS [Suspect]
     Route: 048
     Dates: start: 20050725, end: 20050919
  4. COPEGUS [Suspect]
     Route: 048
     Dates: start: 20051003, end: 20060122

REACTIONS (7)
  - ANAEMIA [None]
  - CEREBROVASCULAR ACCIDENT [None]
  - HYPOKALAEMIA [None]
  - ILL-DEFINED DISORDER [None]
  - NEUTROPENIA [None]
  - PERONEAL NERVE PALSY [None]
  - PNEUMONIA [None]
